FAERS Safety Report 18090508 (Version 1)
Quarter: 2020Q3

REPORT INFORMATION
  Report Type: Spontaneous
  Country: GB (occurrence: GB)
  Receive Date: 20200730
  Receipt Date: 20200730
  Transmission Date: 20201103
  Serious: Yes (Hospitalization)
  Sender: FDA-Public Use
  Company Number: GB-TEVA-2020-GB-1806509

PATIENT
  Age: 83 Year
  Sex: Male

DRUGS (8)
  1. DOVOBET [Concomitant]
     Active Substance: BETAMETHASONE\CALCIPOTRIENE
     Dosage: APPLY AT PER DERM.
     Route: 061
  2. AMITRIPTYLINE [Concomitant]
     Active Substance: AMITRIPTYLINE
     Dosage: 10 MILLIGRAM DAILY; NIGHT
     Route: 048
  3. CLOPIDOGREL [Suspect]
     Active Substance: CLOPIDOGREL BISULFATE
     Dosage: 75 MILLIGRAM DAILY; MORNING
     Route: 048
  4. BACLOFEN. [Concomitant]
     Active Substance: BACLOFEN
     Dosage: 5MG/5ML
     Route: 048
  5. HYDROMOL OINTMENT [Concomitant]
     Active Substance: PARAFFIN\WAX, EMULSIFYING
     Dosage: APPLY
     Route: 061
  6. CASSIA [Concomitant]
     Dosage: ONE OR TWO AT NIGHT AS NEEDED
     Route: 048
  7. ATORVASTATIN [Concomitant]
     Active Substance: ATORVASTATIN
     Dosage: 40 MILLIGRAM DAILY; NIGHT
     Route: 048
  8. WARFARIN [Suspect]
     Active Substance: WARFARIN
     Dosage: 1MG ONCE DAILY EXCEPT WEDNESDAY AND SUNDAY WHERE 2MG ONCE DAILY
     Route: 048
     Dates: end: 20200407

REACTIONS (1)
  - Haematuria [Recovering/Resolving]

NARRATIVE: CASE EVENT DATE: 20200407
